FAERS Safety Report 8337660-9 (Version None)
Quarter: 2012Q2

REPORT INFORMATION
  Report Type: 
  Country: None (occurrence: None)
  Receive Date: 20120504
  Receipt Date: 20120504
  Transmission Date: 20120825
  Serious: Yes (Other)
  Sender: FDA-Public Use
  Company Number: None

PATIENT
  Age: 70 Year
  Sex: Male
  Weight: 131.08 kg

DRUGS (2)
  1. INOSITOL TAB [Suspect]
     Indication: CARDIAC DISORDER
     Dosage: |DOSAGETEXT: 1000 MG||STRENGTH: 500 MG||FREQ: DAILY||ROUTE: ORAL|
     Route: 048
     Dates: start: 20091126, end: 20120420
  2. ULORIC [Suspect]
     Indication: BLOOD URIC ACID INCREASED
     Dosage: |DOSAGETEXT: 80 MG||STRENGTH: 80 MG||FREQ: DAILY||ROUTE: ORAL|
     Route: 048
     Dates: start: 20120214, end: 20120503

REACTIONS (2)
  - GOUT [None]
  - PRURITUS [None]
